FAERS Safety Report 5192029-3 (Version None)
Quarter: 2006Q4

REPORT INFORMATION
  Report Type: 
  Country: None (occurrence: None)
  Receive Date: 20061220
  Receipt Date: 20061220
  Transmission Date: 20070319
  Serious: Yes (Hospitalization)
  Sender: FDA-Public Use
  Company Number: None

PATIENT
  Age: 45 Year
  Sex: Male
  Weight: 74.8435 kg

DRUGS (1)
  1. CEFTRIAXONE [Suspect]
     Indication: SYSTEMIC ANTIBACTERIAL THERAPY
     Dosage: OTO
     Dates: start: 20060818

REACTIONS (6)
  - FEELING HOT [None]
  - HYPERSENSITIVITY [None]
  - NON-CARDIAC CHEST PAIN [None]
  - PRURITUS [None]
  - RASH GENERALISED [None]
  - URTICARIA [None]
